FAERS Safety Report 23839434 (Version 1)
Quarter: 2024Q2

REPORT INFORMATION
  Report Type: Report from Study
  Country: AU (occurrence: AU)
  Receive Date: 20240510
  Receipt Date: 20240510
  Transmission Date: 20240716
  Serious: Yes (Other)
  Sender: FDA-Public Use
  Company Number: AU-002147023-NVSC2024AU095434

PATIENT
  Sex: Female

DRUGS (3)
  1. KISQALI [Suspect]
     Active Substance: RIBOCICLIB
     Indication: Hormone receptor positive breast cancer
     Dosage: 400 MG, QD
     Route: 048
     Dates: start: 20231127
  2. KISQALI [Suspect]
     Active Substance: RIBOCICLIB
     Indication: Neoplasm
     Dosage: 200 MG, QD
     Route: 048
     Dates: start: 202403
  3. KISQALI [Suspect]
     Active Substance: RIBOCICLIB
     Indication: Lymphoma

REACTIONS (2)
  - Neutropenia [Unknown]
  - Thrombocytopenia [Unknown]
